FAERS Safety Report 23286086 (Version 5)
Quarter: 2024Q1

REPORT INFORMATION
  Report Type: Report from Study
  Country: US (occurrence: US)
  Receive Date: 20231212
  Receipt Date: 20240205
  Transmission Date: 20240410
  Serious: Yes (Death, Other)
  Sender: FDA-Public Use
  Company Number: US-TAKEDA-2023TUS054976

PATIENT
  Sex: Male
  Weight: 89 kg

DRUGS (4)
  1. MARIBAVIR [Suspect]
     Active Substance: MARIBAVIR
     Indication: Cytomegalovirus infection
     Dosage: 200 MILLIGRAM, BID
     Route: 048
     Dates: start: 20230531, end: 20230718
  2. MARIBAVIR [Suspect]
     Active Substance: MARIBAVIR
     Indication: Myelodysplastic syndrome
     Dosage: 400 MILLIGRAM, BID
     Route: 065
     Dates: start: 20231209
  3. MARIBAVIR [Suspect]
     Active Substance: MARIBAVIR
     Dosage: 400 MILLIGRAM, BID
     Route: 048
  4. JAKAFI [Suspect]
     Active Substance: RUXOLITINIB
     Indication: Product used for unknown indication
     Dosage: 5 MILLIGRAM, BID
     Route: 065
     Dates: start: 20231230

REACTIONS (7)
  - Death [Fatal]
  - Cytomegalovirus infection reactivation [Unknown]
  - Rash [Unknown]
  - Aphasia [Unknown]
  - Dysgeusia [Unknown]
  - Intentional product use issue [Unknown]
  - Product use complaint [Unknown]
